FAERS Safety Report 13886130 (Version 1)
Quarter: 2017Q3

REPORT INFORMATION
  Report Type: Spontaneous
  Country: US (occurrence: US)
  Receive Date: 20170821
  Receipt Date: 20170821
  Transmission Date: 20171127
  Serious: Yes (Other)
  Sender: FDA-Public Use
  Company Number: US-ASTRAZENECA-2017SE84126

PATIENT
  Age: 68 Year
  Sex: Female
  Weight: 75 kg

DRUGS (3)
  1. NEXIUM 24HR [Suspect]
     Active Substance: ESOMEPRAZOLE MAGNESIUM
     Indication: DYSPEPSIA
     Route: 048
  2. NEXIUM 24HR [Suspect]
     Active Substance: ESOMEPRAZOLE MAGNESIUM
     Indication: DYSPEPSIA
     Dosage: 40 MG, DAILY, TAKES 2 TABLETS OR CAPSULES PER DAY
     Route: 048
  3. GABAPENTIN. [Concomitant]
     Active Substance: GABAPENTIN
     Indication: PAIN
     Route: 065

REACTIONS (8)
  - Hip fracture [Recovering/Resolving]
  - Visual impairment [Unknown]
  - Malaise [Unknown]
  - Intentional product use issue [Unknown]
  - Vomiting [Unknown]
  - Fractured coccyx [Recovering/Resolving]
  - Depressed mood [Unknown]
  - Gait inability [Unknown]

NARRATIVE: CASE EVENT DATE: 20170514
